FAERS Safety Report 11779257 (Version 2)
Quarter: 2015Q4

REPORT INFORMATION
  Report Type: Spontaneous
  Country: US (occurrence: US)
  Receive Date: 20151125
  Receipt Date: 20151214
  Transmission Date: 20160304
  Serious: Yes (Hospitalization)
  Sender: FDA-Public Use
  Company Number: US-PFIZER INC-2015407016

PATIENT
  Age: 69 Year
  Sex: Male
  Weight: 75 kg

DRUGS (1)
  1. ADVIL [Suspect]
     Active Substance: IBUPROFEN
     Indication: ARTHRITIS
     Dosage: 2 TABLETS (400MG)
     Route: 048
     Dates: start: 20151126, end: 20151126

REACTIONS (7)
  - Hyperhidrosis [Recovering/Resolving]
  - Rash [Recovered/Resolved]
  - Fall [Recovering/Resolving]
  - Erythema [Recovering/Resolving]
  - Asthenia [Not Recovered/Not Resolved]
  - Pyrexia [Recovering/Resolving]
  - Vision blurred [Recovering/Resolving]

NARRATIVE: CASE EVENT DATE: 20151126
